FAERS Safety Report 6742643-6 (Version None)
Quarter: 2010Q2

REPORT INFORMATION
  Report Type: 
  Country: None (occurrence: None)
  Receive Date: 20100524
  Receipt Date: 20100323
  Transmission Date: 20101027
  Serious: No
  Sender: FDA-Public Use
  Company Number: ACO_00658_2010

PATIENT
  Sex: Female
  Weight: 49.8957 kg

DRUGS (9)
  1. AMPYRA [Suspect]
     Indication: ASTHENIA
     Dosage: (10 MG BID ORAL), (10 MG QD ORAL)
     Route: 048
     Dates: start: 20100313, end: 20100313
  2. AMPYRA [Suspect]
     Indication: MULTIPLE SCLEROSIS
     Dosage: (10 MG BID ORAL), (10 MG QD ORAL)
     Route: 048
     Dates: start: 20100313, end: 20100313
  3. AMPYRA [Suspect]
     Indication: ASTHENIA
     Dosage: (10 MG BID ORAL), (10 MG QD ORAL)
     Route: 048
     Dates: start: 20100314
  4. AMPYRA [Suspect]
     Indication: MULTIPLE SCLEROSIS
     Dosage: (10 MG BID ORAL), (10 MG QD ORAL)
     Route: 048
     Dates: start: 20100314
  5. 4-AP [Suspect]
     Indication: MULTIPLE SCLEROSIS
     Dosage: (DF, THREE TIMES DAILY)
  6. ATENOLOL [Concomitant]
  7. AMITIZA [Concomitant]
  8. DITROPAN XL [Concomitant]
  9. DIAZEPAM [Concomitant]

REACTIONS (4)
  - INAPPROPRIATE SCHEDULE OF DRUG ADMINISTRATION [None]
  - OFF LABEL USE [None]
  - PARAESTHESIA [None]
  - POOR QUALITY SLEEP [None]
